FAERS Safety Report 20004725 (Version 1)
Quarter: 2021Q4

REPORT INFORMATION
  Report Type: Other
  Country: BE (occurrence: BE)
  Receive Date: 20211027
  Receipt Date: 20211027
  Transmission Date: 20220303
  Serious: Yes (Hospitalization)
  Sender: FDA-Public Use
  Company Number: BE-B.BRAUN MEDICAL INC.-2121078

PATIENT
  Age: 62 Year
  Sex: Female

DRUGS (1)
  1. ACETAMINOPHEN [Suspect]
     Active Substance: ACETAMINOPHEN

REACTIONS (4)
  - Intentional product misuse [Recovered/Resolved]
  - Metabolic acidosis [Recovered/Resolved]
  - Hepatic cytolysis [Recovered/Resolved]
  - Nephropathy toxic [Recovered/Resolved]
